FAERS Safety Report 5361176-5 (Version None)
Quarter: 2007Q2

REPORT INFORMATION
  Report Type: 
  Country: None (occurrence: None)
  Receive Date: 20070618
  Receipt Date: 20070613
  Transmission Date: 20071010
  Serious: Yes (Disabling)
  Sender: FDA-Public Use
  Company Number: GB-ABBOTT-07P-167-0371505-00

PATIENT
  Age: 43 Year
  Sex: Male
  Weight: 94 kg

DRUGS (9)
  1. RITONAVIR SOFT GELATIN CAPSULES [Suspect]
     Indication: HIV INFECTION
     Dates: start: 20040101
  2. APTIVUS [Suspect]
     Indication: HIV INFECTION
     Dates: start: 20040101
  3. TRUVADA [Suspect]
     Indication: HIV INFECTION
     Dates: start: 20040101
  4. ATAZANAVIR SULFATE [Suspect]
     Indication: HIV INFECTION
     Dates: start: 20040101
  5. DICLOFENAC [Concomitant]
     Indication: ARTHRALGIA
     Dates: start: 20051201
  6. PRAVASTATIN [Concomitant]
     Indication: BLOOD CHOLESTEROL INCREASED
     Dates: start: 20051201
  7. SILDENAFIL CITRATE [Concomitant]
     Indication: ERECTILE DYSFUNCTION
     Dates: start: 20051201
  8. ECHINACEA PURPUREA [Concomitant]
     Indication: DRUG USE FOR UNKNOWN INDICATION
     Dosage: SELF MEDICATION
     Dates: start: 20051201
  9. ACIDOPHIL CAPSULES [Concomitant]
     Indication: DRUG USE FOR UNKNOWN INDICATION
     Dosage: SELF MEDICATION

REACTIONS (1)
  - OSTEONECROSIS [None]
